FAERS Safety Report 23711403 (Version 1)
Quarter: 2024Q2

REPORT INFORMATION
  Report Type: Spontaneous
  Country: FR (occurrence: FR)
  Receive Date: 20240405
  Receipt Date: 20240405
  Transmission Date: 20240716
  Serious: Yes (Other)
  Sender: FDA-Public Use
  Company Number: None

PATIENT
  Age: 40 Year
  Sex: Female

DRUGS (3)
  1. AZTREONAM [Suspect]
     Active Substance: AZTREONAM
     Indication: Pericarditis
     Route: 042
     Dates: start: 20240318
  2. VANCOMYCIN HYDROCHLORIDE [Suspect]
     Active Substance: VANCOMYCIN HYDROCHLORIDE
     Indication: Pericarditis
     Route: 042
     Dates: start: 20240318
  3. COLCHICINE [Suspect]
     Active Substance: COLCHICINE
     Indication: Pericarditis
     Route: 048
     Dates: start: 20240318

REACTIONS (1)
  - Cholestasis [Recovered/Resolved]

NARRATIVE: CASE EVENT DATE: 20240318
